FAERS Safety Report 17467660 (Version 1)
Quarter: 2020Q1

REPORT INFORMATION
  Report Type: Spontaneous
  Country: US (occurrence: US)
  Receive Date: 20200214
  Receipt Date: 20200214
  Transmission Date: 20200409
  Serious: No
  Sender: FDA-Public Use
  Company Number: None

PATIENT
  Age: 29 Year
  Sex: Male

DRUGS (2)
  1. HUMIRA [Suspect]
     Active Substance: ADALIMUMAB
     Indication: GASTROINTESTINAL DISORDER
     Dosage: ?          OTHER FREQUENCY:EVERY14DAYS ;?
     Route: 058
     Dates: start: 20190911
  2. PRILOSEC OTC [Concomitant]
     Active Substance: OMEPRAZOLE MAGNESIUM

REACTIONS (1)
  - Diarrhoea [None]
